FAERS Safety Report 7796630-X (Version None)
Quarter: 2011Q4

REPORT INFORMATION
  Report Type: 
  Country: None (occurrence: None)
  Receive Date: 20111005
  Receipt Date: 20110622
  Transmission Date: 20120403
  Serious: No
  Sender: FDA-Public Use
  Company Number: US-BAYER-2011-054381

PATIENT
  Sex: Male

DRUGS (1)
  1. CIPRO [Suspect]
     Dosage: UNK
     Route: 048

REACTIONS (2)
  - PRODUCT TASTE ABNORMAL [None]
  - PRODUCT ODOUR ABNORMAL [None]
